FAERS Safety Report 18185876 (Version 1)
Quarter: 2020Q3

REPORT INFORMATION
  Report Type: Spontaneous
  Country: US (occurrence: US)
  Receive Date: 20200821
  Receipt Date: 20200821
  Transmission Date: 20201103
  Serious: No
  Sender: FDA-Public Use
  Company Number: None

PATIENT
  Age: 66 Year
  Sex: Female

DRUGS (1)
  1. TALTZ [Suspect]
     Active Substance: IXEKIZUMAB
     Dosage: OTHER
     Route: 058
     Dates: start: 201808, end: 202007

REACTIONS (5)
  - Pharyngeal swelling [None]
  - Skin swelling [None]
  - Swelling face [None]
  - Peripheral swelling [None]
  - Urticaria [None]

NARRATIVE: CASE EVENT DATE: 20200727
